FAERS Safety Report 16780808 (Version 1)
Quarter: 2019Q3

REPORT INFORMATION
  Report Type: Spontaneous
  Country: US (occurrence: US)
  Receive Date: 20190906
  Receipt Date: 20190906
  Transmission Date: 20191005
  Serious: Yes (Life-Threatening, Disabling)
  Sender: FDA-Public Use
  Company Number: None

PATIENT
  Age: 45 Year
  Sex: Male
  Weight: 113.4 kg

DRUGS (5)
  1. OXYCODONE [Suspect]
     Active Substance: OXYCODONE
     Indication: PAIN
     Dates: start: 20101014
  2. VALTREX 1X A DAY UNLESS SHINGLES RETURN THEN 3X A DAY [Concomitant]
  3. TITANIUM JAW JOINT [Suspect]
     Active Substance: DEVICE
     Dates: start: 20101001
  4. CYMBALTA 60ML 1X A DAY [Concomitant]
  5. LYRICAL 300ML 2X A DAY [Concomitant]

REACTIONS (3)
  - Pain [None]
  - Herpes zoster [None]
  - Drug withdrawal syndrome [None]

NARRATIVE: CASE EVENT DATE: 20170102
